FAERS Safety Report 4903115-4 (Version None)
Quarter: 2006Q1

REPORT INFORMATION
  Report Type: 
  Country: None (occurrence: None)
  Receive Date: 20060207
  Receipt Date: 20051019
  Transmission Date: 20060701
  Serious: Yes (Hospitalization)
  Sender: FDA-Public Use
  Company Number: US-MERCK-0510USA08260

PATIENT
  Age: 70 Year
  Sex: Female
  Weight: 61 kg

DRUGS (13)
  1. VIOXX [Suspect]
     Indication: ARTHRITIS
     Route: 048
     Dates: start: 19990520, end: 20041001
  2. VIOXX [Suspect]
     Indication: PAIN
     Route: 048
     Dates: start: 19990520, end: 20041001
  3. PREMARIN [Concomitant]
     Route: 065
  4. LIPITOR [Concomitant]
     Route: 065
  5. ZOCOR [Concomitant]
     Route: 065
  6. NITROGLYCERIN [Concomitant]
     Route: 065
  7. FELDENE [Concomitant]
     Route: 065
  8. HYOSCYAMINE SULFATE [Concomitant]
     Route: 065
  9. TYLENOL [Concomitant]
     Route: 065
  10. ATENOLOL [Concomitant]
     Indication: HYPERTENSION
     Route: 065
     Dates: start: 20000101
  11. DIOVAN [Concomitant]
     Indication: HYPERTENSION
     Route: 065
     Dates: start: 20020101
  12. DIOVAN [Concomitant]
     Indication: CARDIAC DISORDER
     Route: 065
     Dates: start: 20020101
  13. NORVASC [Concomitant]
     Indication: HYPERTENSION
     Route: 065
     Dates: start: 20000101

REACTIONS (10)
  - ABDOMINAL PAIN UPPER [None]
  - CARDIAC DISORDER [None]
  - CARDIAC FAILURE CONGESTIVE [None]
  - DEEP VEIN THROMBOSIS [None]
  - EMPHYSEMA [None]
  - HEADACHE [None]
  - MYOCARDIAL INFARCTION [None]
  - OEDEMA PERIPHERAL [None]
  - PEPTIC ULCER [None]
  - SLEEP APNOEA SYNDROME [None]
